FAERS Safety Report 6627889 (Version 2)
Quarter: 2014Q4

REPORT INFORMATION
  Report Type: Spontaneous
  Country: US (occurrence: US)
  Receive Date: 20080429
  Receipt Date: 20141104
  Transmission Date: 20150529
  Serious: No
  Sender: FDA-Public Use
  Company Number: US-ASTRAZENECA-2007UW12612

PATIENT
  Age: 72 Year
  Sex: Male
  Weight: 79.4 kg

DRUGS (7)
  1. PLAVIX [Concomitant]
     Active Substance: CLOPIDOGREL BISULFATE
  2. ECOTRIN [Concomitant]
     Active Substance: ASPIRIN
  3. NEXIUM [Suspect]
     Active Substance: ESOMEPRAZOLE MAGNESIUM
     Indication: EROSIVE OESOPHAGITIS
     Route: 048
     Dates: start: 200704
  4. NEXIUM [Suspect]
     Active Substance: ESOMEPRAZOLE MAGNESIUM
     Indication: DYSPHAGIA
     Route: 048
     Dates: start: 20141012
  5. LOTREL [Concomitant]
     Active Substance: AMLODIPINE BESYLATE\BENAZEPRIL HYDROCHLORIDE
     Indication: BLOOD PRESSURE ABNORMAL
  6. VIAGRA [Concomitant]
     Active Substance: SILDENAFIL CITRATE
  7. NEXIUM [Suspect]
     Active Substance: ESOMEPRAZOLE MAGNESIUM
     Indication: GASTROOESOPHAGEAL REFLUX DISEASE
     Route: 048
     Dates: start: 200704

REACTIONS (6)
  - Abdominal pain upper [Unknown]
  - Faecal volume increased [Unknown]
  - Intentional product use issue [Unknown]
  - Weight decreased [Unknown]
  - Intentional product misuse [Unknown]
  - Dysphagia [Unknown]

NARRATIVE: CASE EVENT DATE: 200704
